FAERS Safety Report 23664779 (Version 1)
Quarter: 2024Q1

REPORT INFORMATION
  Report Type: Report from Study
  Country: US (occurrence: US)
  Receive Date: 20240322
  Receipt Date: 20240322
  Transmission Date: 20240410
  Serious: Yes (Other)
  Sender: FDA-Public Use
  Company Number: US-GILEAD-2024-0666663

PATIENT
  Sex: Male

DRUGS (1)
  1. SOFOSBUVIR\VELPATASVIR [Suspect]
     Active Substance: SOFOSBUVIR\VELPATASVIR
     Indication: Hepatitis C
     Dosage: 400MG/100MG, QD
     Route: 048
     Dates: start: 20240301

REACTIONS (8)
  - Hallucination [Unknown]
  - Haematochezia [Unknown]
  - Rash [Unknown]
  - Skin lesion [Unknown]
  - Daydreaming [Unknown]
  - Blister [Unknown]
  - Localised infection [Unknown]
  - Feeling abnormal [Unknown]
